FAERS Safety Report 9270170 (Version 2)
Quarter: 2013Q3

REPORT INFORMATION
  Report Type: Report from Study
  Country: CA (occurrence: CA)
  Receive Date: 20130503
  Receipt Date: 20130802
  Transmission Date: 20140515
  Serious: Yes (Other)
  Sender: FDA-Public Use
  Company Number: CA-JNJFOC-20130416505

PATIENT
  Age: 63 Year
  Sex: Female
  Weight: 104 kg

DRUGS (12)
  1. REMICADE [Suspect]
     Indication: PSORIASIS
     Route: 042
     Dates: start: 20080526
  2. LIPITOR [Concomitant]
     Route: 065
  3. VERAPAMIL [Concomitant]
     Route: 065
  4. RAMIPRIL [Concomitant]
     Route: 065
  5. MELOXICAM [Concomitant]
     Route: 065
  6. METFORMIN [Concomitant]
     Route: 065
  7. ASPIRIN [Concomitant]
     Route: 065
  8. CALCIUM W/ VITAMIN D [Concomitant]
     Route: 065
  9. VITMAIN E [Concomitant]
     Route: 065
  10. FISH OIL [Concomitant]
     Route: 065
  11. SALMON OIL [Concomitant]
     Route: 065
  12. NOVOMIX [Concomitant]
     Route: 065

REACTIONS (2)
  - Thyroid disorder [Not Recovered/Not Resolved]
  - Thyroid function test abnormal [Not Recovered/Not Resolved]
